FAERS Safety Report 10341142 (Version 2)
Quarter: 2014Q3

REPORT INFORMATION
  Report Type: Spontaneous
  Country: BR (occurrence: BR)
  Receive Date: 20140724
  Receipt Date: 20140909
  Transmission Date: 20150326
  Serious: No
  Sender: FDA-Public Use
  Company Number: PHHY2014BR089221

PATIENT
  Age: 55 Year
  Sex: Female

DRUGS (5)
  1. ONBREZ [Suspect]
     Active Substance: INDACATEROL
     Indication: ASTHMA
  2. ONBREZ [Suspect]
     Active Substance: INDACATEROL
     Indication: OFF LABEL USE
  3. ONBREZ [Suspect]
     Active Substance: INDACATEROL
     Indication: BRONCHITIS
     Dosage: 150 UG, QD
     Route: 055
     Dates: start: 2014, end: 2014
  4. ONBREZ [Suspect]
     Active Substance: INDACATEROL
     Indication: LUNG DISORDER
  5. ONBREZ [Suspect]
     Active Substance: INDACATEROL
     Indication: DYSPNOEA

REACTIONS (8)
  - Dyspnoea [Not Recovered/Not Resolved]
  - Arthralgia [Not Recovered/Not Resolved]
  - Dysstasia [Recovering/Resolving]
  - Fatigue [Not Recovered/Not Resolved]
  - Peripheral swelling [Recovering/Resolving]
  - Hypoaesthesia [Recovering/Resolving]
  - Lung disorder [Not Recovered/Not Resolved]
  - Hypokinesia [Not Recovered/Not Resolved]
